FAERS Safety Report 8782559 (Version 1)
Quarter: 2012Q4

REPORT INFORMATION
  Report Type: Report from Study
  Country: US (occurrence: US)
  Receive Date: 20120913
  Receipt Date: 20120913
  Transmission Date: 20130627
  Serious: No
  Sender: FDA-Public Use
  Company Number: US-VERTEX PHARMACEUTICAL INC.-AE-2012-010072

PATIENT
  Sex: Male

DRUGS (5)
  1. INCIVEK [Suspect]
     Indication: HEPATITIS C
     Route: 048
  2. PEG-INTRON KIT [Concomitant]
     Indication: HEPATITIS C
  3. RIBAVIRIN [Concomitant]
     Indication: HEPATITIS C
  4. ASACOL [Concomitant]
  5. ALEVE [Concomitant]

REACTIONS (6)
  - Abdominal discomfort [Unknown]
  - Anxiety [Unknown]
  - Feeling abnormal [Unknown]
  - Rash [Unknown]
  - Pruritus [Unknown]
  - Dysgeusia [Unknown]
